FAERS Safety Report 23016205 (Version 2)
Quarter: 2024Q4

REPORT INFORMATION
  Report Type: Spontaneous
  Country: US (occurrence: US)
  Receive Date: 20231002
  Receipt Date: 20241003
  Transmission Date: 20250115
  Serious: No
  Sender: HARMONY BIOSCIENCES
  Company Number: US-HARMONY BIOSCIENCES-2023HMY01064

PATIENT

DRUGS (4)
  1. WAKIX [Suspect]
     Active Substance: PITOLISANT HYDROCHLORIDE
     Indication: Narcolepsy
     Dosage: 35.6 MG, 1X/DAY
     Route: 048
     Dates: start: 202301
  2. WAKIX [Suspect]
     Active Substance: PITOLISANT HYDROCHLORIDE
     Indication: Cataplexy
  3. ONFI [Suspect]
     Active Substance: CLOBAZAM
     Indication: Fall
     Dosage: UNK
     Dates: start: 20230602, end: 202306
  4. ONFI [Suspect]
     Active Substance: CLOBAZAM
     Dosage: DOSE WAS CUT BY HALF
     Dates: start: 202306

REACTIONS (3)
  - Fall [Not Recovered/Not Resolved]
  - Accidental overdose [Recovered/Resolved]
  - Drug interaction [Not Recovered/Not Resolved]

NARRATIVE: CASE EVENT DATE: 20230601
